FAERS Safety Report 25960926 (Version 1)
Quarter: 2025Q4

REPORT INFORMATION
  Report Type: Spontaneous
  Country: EU (occurrence: EU)
  Receive Date: 20251027
  Receipt Date: 20251027
  Transmission Date: 20260118
  Serious: Yes (Other)
  Sender: BRISTOL-MYERS SQUIBB COMPANY
  Company Number: EU-BRISTOL-MYERS SQUIBB COMPANY-2025-144451

PATIENT
  Age: 38 Year
  Sex: Male

DRUGS (8)
  1. NIVOLUMAB [Suspect]
     Active Substance: NIVOLUMAB
     Indication: Plasma cell myeloma
     Dosage: 3 DOSES
     Dates: start: 202312, end: 202401
  2. NIVOLUMAB [Suspect]
     Active Substance: NIVOLUMAB
  3. NIVOLUMAB [Suspect]
     Active Substance: NIVOLUMAB
  4. NIVOLUMAB [Suspect]
     Active Substance: NIVOLUMAB
     Dates: start: 202403, end: 202403
  5. NIVOLUMAB [Suspect]
     Active Substance: NIVOLUMAB
     Dates: start: 202411, end: 202504
  6. TALIMOGENE LAHERPAREPVEC [Concomitant]
     Active Substance: TALIMOGENE LAHERPAREPVEC
     Indication: Product used for unknown indication
  7. Low dose PACLITAXEL [Concomitant]
     Indication: Metastatic malignant melanoma
  8. TRAMETINIB [Concomitant]
     Active Substance: TRAMETINIB
     Indication: Metastatic malignant melanoma

REACTIONS (6)
  - Vestibular neuronitis [Unknown]
  - Diarrhoea [Unknown]
  - Eosinophilia [Unknown]
  - Embolic stroke [Unknown]
  - Off label use [Unknown]
  - Plasma cell myeloma [Unknown]

NARRATIVE: CASE EVENT DATE: 20231201
